FAERS Safety Report 14140445 (Version 1)
Quarter: 2017Q4

REPORT INFORMATION
  Report Type: Spontaneous
  Country: US (occurrence: None)
  Receive Date: 20171027
  Receipt Date: 20171027
  Transmission Date: 20180321
  Serious: Yes (Hospitalization)
  Sender: FDA-Public Use
  Company Number: None

PATIENT
  Age: 73 Year
  Sex: Male
  Weight: 201 kg

DRUGS (1)
  1. CEFTAROLINE [Suspect]
     Active Substance: CEFTAROLINE
     Indication: SEPSIS
     Dosage: 600 MG OTHER IV
     Route: 042
     Dates: start: 20170920, end: 20171016

REACTIONS (7)
  - Pyrexia [None]
  - Headache [None]
  - Weight decreased [None]
  - Rash [None]
  - Neutropenia [None]
  - Arthralgia [None]
  - Decreased appetite [None]

NARRATIVE: CASE EVENT DATE: 20171018
